FAERS Safety Report 20348151 (Version 1)
Quarter: 2022Q1

REPORT INFORMATION
  Report Type: Spontaneous
  Country: US (occurrence: US)
  Receive Date: 20220119
  Receipt Date: 20220119
  Transmission Date: 20220423
  Serious: Yes (Other)
  Sender: FDA-Public Use
  Company Number: US-CELLTRION INC.-2022US000383

PATIENT

DRUGS (2)
  1. TRUXIMA [Suspect]
     Active Substance: RITUXIMAB-ABBS
     Indication: Nephritic syndrome
     Dosage: 1000MG Q4MONTHS
     Dates: start: 20200909
  2. TRUXIMA [Suspect]
     Active Substance: RITUXIMAB-ABBS
     Indication: Chronic kidney disease
     Dosage: 1000MG Q4MONTHS
     Dates: start: 20210309

REACTIONS (3)
  - Nephritic syndrome [Unknown]
  - Chronic kidney disease [Unknown]
  - Off label use [Unknown]
